FAERS Safety Report 10097796 (Version 2)
Quarter: 2014Q2

REPORT INFORMATION
  Report Type: Spontaneous
  Country: US (occurrence: US)
  Receive Date: 20140423
  Receipt Date: 20140508
  Transmission Date: 20141212
  Serious: No
  Sender: FDA-Public Use
  Company Number: US-BIOGENIDEC-2014BI035298

PATIENT
  Age: 51 Year
  Sex: Female

DRUGS (10)
  1. TECFIDERA [Suspect]
     Indication: RELAPSING-REMITTING MULTIPLE SCLEROSIS
     Route: 048
     Dates: start: 20131011
  2. BENADRYL [Concomitant]
     Indication: PREMEDICATION
  3. BENADRYL [Concomitant]
     Indication: FLUSHING
  4. BENADRYL [Concomitant]
     Indication: HYPERSENSITIVITY
  5. BENADRYL [Concomitant]
     Indication: PREMEDICATION
  6. BENADRYL [Concomitant]
     Indication: FLUSHING
  7. BENADRYL [Concomitant]
     Indication: HYPERSENSITIVITY
  8. LOW DOSE ASPIRIN [Concomitant]
     Indication: PREMEDICATION
  9. LOW DOSE ASPIRIN [Concomitant]
     Indication: FLUSHING
  10. LOW DOSE ASPIRIN [Concomitant]
     Indication: HYPERSENSITIVITY

REACTIONS (7)
  - Drug intolerance [Not Recovered/Not Resolved]
  - Hypersensitivity [Not Recovered/Not Resolved]
  - Somnolence [Unknown]
  - Prescribed underdose [Recovered/Resolved]
  - Dizziness [Not Recovered/Not Resolved]
  - Nervousness [Not Recovered/Not Resolved]
  - Flushing [Not Recovered/Not Resolved]
